FAERS Safety Report 9844321 (Version 1)
Quarter: 2014Q1

REPORT INFORMATION
  Report Type: Report from Study
  Country: DE (occurrence: DE)
  Receive Date: 20140127
  Receipt Date: 20140127
  Transmission Date: 20141002
  Serious: Yes (Hospitalization)
  Sender: FDA-Public Use
  Company Number: DE-BRISTOL-MYERS SQUIBB COMPANY-20088605

PATIENT
  Age: 64 Year
  Sex: Female

DRUGS (3)
  1. CETUXIMAB [Suspect]
     Indication: NON-SMALL CELL LUNG CANCER
     Dosage: 400 MG/M2, INITIAL DOSE,FOLLOWED BY 250 MG/M2,STANDARD DOSE, WEEKLY UNTIL PD
     Route: 040
     Dates: start: 20121220, end: 20121227
  2. CARBOPLATIN [Suspect]
     Indication: NON-SMALL CELL LUNG CANCER
     Route: 042
     Dates: start: 20121220, end: 20121220
  3. GEMCITABINE [Suspect]
     Indication: NON-SMALL CELL LUNG CANCER
     Dosage: 1200 D1, 8, Q3W FOR 4 CYCLES COMBINED WITH CARBOPLATIN AUC5 DL, Q3W FOR 4 CYCLES
     Route: 042
     Dates: start: 20121220, end: 20121227

REACTIONS (1)
  - Thrombocytopenia [Recovered/Resolved]
